APPROVED DRUG PRODUCT: ACTISITE
Active Ingredient: TETRACYCLINE HYDROCHLORIDE
Strength: 12.7MG/FIBER
Dosage Form/Route: FIBER, EXTENDED RELEASE;PERIODONTAL
Application: N050653 | Product #001
Applicant: SCHIFF AND CO
Approved: Mar 25, 1994 | RLD: No | RS: No | Type: DISCN